FAERS Safety Report 13838955 (Version 1)
Quarter: 2017Q3

REPORT INFORMATION
  Report Type: Spontaneous
  Country: US (occurrence: US)
  Receive Date: 20170805
  Receipt Date: 20170805
  Transmission Date: 20171127
  Serious: No
  Sender: FDA-Public Use
  Company Number: None

PATIENT
  Age: 50 Year
  Sex: Female

DRUGS (1)
  1. ENBREL [Suspect]
     Active Substance: ETANERCEPT

REACTIONS (5)
  - Pain [None]
  - Joint warmth [None]
  - Joint swelling [None]
  - Inability to afford medication [None]
  - Therapy cessation [None]

NARRATIVE: CASE EVENT DATE: 20170704
